FAERS Safety Report 7560243-5 (Version None)
Quarter: 2011Q2

REPORT INFORMATION
  Report Type: 
  Country: None (occurrence: None)
  Receive Date: 20110621
  Receipt Date: 20110606
  Transmission Date: 20111010
  Serious: Yes (Hospitalization)
  Sender: FDA-Public Use
  Company Number: JP-WATSON-2011-03453

PATIENT
  Sex: Female
  Weight: 50 kg

DRUGS (3)
  1. FLUOROURACIL [Suspect]
     Indication: COLON CANCER
     Dosage: UNK
  2. IRINOTECAN HCL [Suspect]
     Indication: COLON CANCER
     Dosage: UNK
     Route: 042
  3. BEVACIZUMAB [Suspect]
     Indication: COLON CANCER
     Dosage: UNK

REACTIONS (2)
  - TRAUMATIC LUNG INJURY [None]
  - RESPIRATORY FAILURE [None]
